FAERS Safety Report 4883435-2 (Version None)
Quarter: 2006Q1

REPORT INFORMATION
  Report Type: 
  Country: None (occurrence: None)
  Receive Date: 20060118
  Receipt Date: 20050705
  Transmission Date: 20060701
  Serious: Yes (Hospitalization)
  Sender: FDA-Public Use
  Company Number: US-MERCK-0507USA00584

PATIENT
  Age: 67 Year
  Sex: Female
  Weight: 61 kg

DRUGS (1)
  1. VIOXX [Suspect]
     Indication: ARTHRITIS
     Route: 048
     Dates: start: 19990922, end: 20010313

REACTIONS (29)
  - ANAEMIA [None]
  - ANGINA UNSTABLE [None]
  - ANXIETY [None]
  - CARDIAC FAILURE CONGESTIVE [None]
  - CARDIOMEGALY [None]
  - CHEST DISCOMFORT [None]
  - CHEST PAIN [None]
  - CORONARY ARTERY DISEASE [None]
  - CORONARY ARTERY STENOSIS [None]
  - DEPRESSION [None]
  - DIZZINESS [None]
  - DYSPNOEA [None]
  - GASTROINTESTINAL HAEMORRHAGE [None]
  - HAEMATOCHEZIA [None]
  - HYPERKALAEMIA [None]
  - HYPERTENSION [None]
  - HYPONATRAEMIA [None]
  - ILEUS [None]
  - MITRAL VALVE INCOMPETENCE [None]
  - MOUTH ULCERATION [None]
  - MYOCARDIAL INFARCTION [None]
  - PEPTIC ULCER [None]
  - PERICARDIAL EFFUSION [None]
  - RENAL FAILURE CHRONIC [None]
  - STOMATITIS [None]
  - TENSION HEADACHE [None]
  - TRICUSPID VALVE INCOMPETENCE [None]
  - UPPER LIMB FRACTURE [None]
  - WEIGHT INCREASED [None]
